FAERS Safety Report 4724985-9 (Version None)
Quarter: 2005Q3

REPORT INFORMATION
  Report Type: 
  Country: None (occurrence: None)
  Receive Date: 20050722
  Receipt Date: 20050722
  Transmission Date: 20060218
  Serious: Yes (Hospitalization)
  Sender: FDA-Public Use
  Company Number: None

PATIENT
  Age: 64 Year
  Sex: Female

DRUGS (9)
  1. AZATHIAPRINE [Suspect]
  2. WARFARIN [Suspect]
  3. AMLODIPINE [Concomitant]
  4. THYROID TAB [Concomitant]
  5. ESTERASE [Concomitant]
  6. OMEPRAZOLE [Concomitant]
  7. CYCLOBENZAPRINE HCL [Concomitant]
  8. METOCLOPRAMIDE [Concomitant]
  9. COMPAZINE [Concomitant]

REACTIONS (5)
  - FATIGUE [None]
  - INTERNATIONAL NORMALISED RATIO INCREASED [None]
  - NAUSEA [None]
  - PYREXIA [None]
  - RASH [None]
